FAERS Safety Report 6836325-X (Version None)
Quarter: 2010Q3

REPORT INFORMATION
  Report Type: 
  Country: None (occurrence: None)
  Receive Date: 20100713
  Receipt Date: 20100707
  Transmission Date: 20110219
  Serious: Yes (Hospitalization, Other)
  Sender: FDA-Public Use
  Company Number: FR-MERCK-1004FRA00118

PATIENT
  Age: 72 Year
  Sex: Male

DRUGS (4)
  1. JANUVIA [Suspect]
     Indication: DIABETES MELLITUS
     Route: 048
     Dates: start: 20091101, end: 20100201
  2. GLICLAZIDE [Concomitant]
     Indication: DIABETES MELLITUS
     Route: 065
     Dates: start: 20100201, end: 20100201
  3. ROSUVASTATIN CALCIUM [Concomitant]
     Indication: HYPERCHOLESTEROLAEMIA
     Route: 065
     Dates: start: 20100201, end: 20100201
  4. ASPIRIN LYSINE [Concomitant]
     Route: 065
     Dates: start: 20100201

REACTIONS (2)
  - ISCHAEMIC STROKE [None]
  - NEUROPATHY PERIPHERAL [None]
